FAERS Safety Report 24031602 (Version 2)
Quarter: 2024Q4

REPORT INFORMATION
  Report Type: Spontaneous
  Country: US (occurrence: US)
  Receive Date: 20240629
  Receipt Date: 20241025
  Transmission Date: 20250115
  Serious: Yes (Hospitalization)
  Sender: AUROBINDO
  Company Number: US-AUROBINDO-AUR-APL-2024-030937

PATIENT
  Age: 8 Year
  Sex: Female

DRUGS (6)
  1. KETAMINE HYDROCHLORIDE [Suspect]
     Active Substance: KETAMINE HYDROCHLORIDE
     Indication: New onset refractory status epilepticus
     Dosage: UNK
     Route: 065
  2. CANNABIDIOL [Suspect]
     Active Substance: CANNABIDIOL
     Indication: New onset refractory status epilepticus
     Dosage: UNK
     Route: 065
  3. HUMAN IMMUNOGLOBULIN G [Suspect]
     Active Substance: HUMAN IMMUNOGLOBULIN G
     Indication: New onset refractory status epilepticus
     Dosage: UNK
     Route: 042
  4. PENTOBARBITAL [Suspect]
     Active Substance: PENTOBARBITAL
     Indication: New onset refractory status epilepticus
     Dosage: UNK
     Route: 065
  5. RITUXIMAB [Suspect]
     Active Substance: RITUXIMAB
     Indication: New onset refractory status epilepticus
     Dosage: UNK
     Route: 065
  6. PROPOFOL [Suspect]
     Active Substance: PROPOFOL
     Indication: New onset refractory status epilepticus
     Dosage: UNK (HIGH DOSE)
     Route: 065

REACTIONS (1)
  - Drug ineffective [Unknown]
